FAERS Safety Report 6127279-2 (Version None)
Quarter: 2009Q1

REPORT INFORMATION
  Report Type: 
  Country: None (occurrence: None)
  Receive Date: 20090319
  Receipt Date: 20090305
  Transmission Date: 20090719
  Serious: Yes (Hospitalization)
  Sender: FDA-Public Use
  Company Number: 02100-JPN-07-0299

PATIENT
  Age: 58 Year
  Sex: Male

DRUGS (35)
  1. PLAVIX [Suspect]
     Indication: PROPHYLAXIS
     Dosage: 75 MG, DAILY DOSE , ORAL : 75 MG, DAILY DOSE; ORAL
     Route: 048
     Dates: start: 20070131, end: 20070617
  2. PLAVIX [Suspect]
     Indication: THROMBOSIS
     Dosage: 75 MG, DAILY DOSE , ORAL : 75 MG, DAILY DOSE; ORAL
     Route: 048
     Dates: start: 20070131, end: 20070617
  3. PLAVIX [Suspect]
     Indication: PROPHYLAXIS
     Dosage: 75 MG, DAILY DOSE , ORAL : 75 MG, DAILY DOSE; ORAL
     Route: 048
     Dates: start: 20070718, end: 20070821
  4. PLAVIX [Suspect]
     Indication: THROMBOSIS
     Dosage: 75 MG, DAILY DOSE , ORAL : 75 MG, DAILY DOSE; ORAL
     Route: 048
     Dates: start: 20070718, end: 20070821
  5. ASPIRIN [Concomitant]
  6. EPROSARTAN/HYDROCHLOROTHIAZIDE (EPROSARTAN/HYDROCHLOROTHIAZIDE) [Concomitant]
  7. LERCANIDIPINE [Concomitant]
  8. HYDROCHLOROTHIAZIDE [Concomitant]
  9. ALPRAZOLAM [Concomitant]
  10. HYDROCHLOROTHIAZIDE [Concomitant]
  11. CALCIUM GLUCONATE (CALCIUM GLUCONATE) INJECTION [Concomitant]
  12. FUROSEMIDE (FUROSEMIDE) INJECTION [Concomitant]
  13. CIMETIDINE (CIMETIDINE) INJECTION [Concomitant]
  14. 20% ALBUMIN (20% ALBUMIN) INJECTION [Concomitant]
  15. GLAMIN INJ. (GLAMIN INJ.) INJECTION [Concomitant]
  16. PN-TWIN INFUSION BAG (PN-TWIN INFUSION BAG) INJECTION [Concomitant]
  17. LEVOFLOXACIN [Concomitant]
  18. COUGH SYRUP S (COUGH SYRUP S) [Concomitant]
  19. POTASSIUM CHLORIDE [Concomitant]
  20. MAGNESIUM HYDROXIDE TAB [Concomitant]
  21. DOMPERIDONE (DOMPERIDONE) [Concomitant]
  22. MOSAPRIDE CITRATE (MOSAPRIDE CITRATE) [Concomitant]
  23. PAROXETINE HCL [Concomitant]
  24. CLONAZEPAM [Concomitant]
  25. ESCITALOPRAM OXALATE (ESCITALOPRAM OXALATE) [Concomitant]
  26. CARDUUS MARIANUS EXTRACT (CARDUUS MARIANUS EXTRACT) [Concomitant]
  27. TAMSULOSIN HCL [Concomitant]
  28. TARAZOSIN (TARAZOSIN) [Concomitant]
  29. GABAPENTIN [Concomitant]
  30. HYDROXYZINE HCL [Concomitant]
  31. URSA (URSA) [Concomitant]
  32. ALFUZOSIN HYDROCHLORIDE (ALFUZOSIN HYDROCHLORIDE) [Concomitant]
  33. BENIDIPINE HYDROCHLORIDE (BENIDIPINE HYDROCHLORIDE) [Concomitant]
  34. OLMESARTAN MEDOXOMIL [Concomitant]
  35. ATORVASTATIN CALCIUM [Concomitant]

REACTIONS (4)
  - ALCOHOL POISONING [None]
  - FALL [None]
  - LUMBAR VERTEBRAL FRACTURE [None]
  - RIB FRACTURE [None]
